FAERS Safety Report 10592368 (Version 1)
Quarter: 2014Q4

REPORT INFORMATION
  Report Type: Spontaneous
  Country: FR (occurrence: FR)
  Receive Date: 20141119
  Receipt Date: 20141119
  Transmission Date: 20150529
  Serious: Yes (Other)
  Sender: FDA-Public Use
  Company Number: FR-ROCHE-1491412

PATIENT
  Age: 53 Year
  Sex: Male

DRUGS (12)
  1. 5-FU [Suspect]
     Active Substance: FLUOROURACIL
     Dosage: MAINTENANCE DOSE
     Route: 041
     Dates: start: 20141104
  2. 5-FU [Suspect]
     Active Substance: FLUOROURACIL
     Indication: COLON CANCER METASTATIC
     Dosage: THIRD LINE THERAPY
     Route: 042
     Dates: start: 20140827
  3. AVASTIN [Suspect]
     Active Substance: BEVACIZUMAB
     Dosage: THIRD LINE THERAPY
     Route: 041
     Dates: start: 20140827
  4. OXALIPLATIN. [Suspect]
     Active Substance: OXALIPLATIN
     Dosage: THIRD LINE THERAPY
     Route: 041
     Dates: start: 20141104
  5. 5-FU [Suspect]
     Active Substance: FLUOROURACIL
     Dosage: MAINTENANCE DOSE
     Route: 041
     Dates: start: 20140925
  6. FOLINIC ACID [Concomitant]
     Active Substance: LEUCOVORIN
     Indication: COLON CANCER METASTATIC
     Route: 065
     Dates: start: 201210, end: 201301
  7. FOLINIC ACID [Concomitant]
     Active Substance: LEUCOVORIN
     Dosage: SECOND LINE THERAPY
     Route: 065
     Dates: start: 201306, end: 201407
  8. OXALIPLATIN. [Suspect]
     Active Substance: OXALIPLATIN
     Dosage: THIRD LINE THERAPY
     Route: 041
     Dates: start: 20140925
  9. 5-FU [Suspect]
     Active Substance: FLUOROURACIL
     Route: 040
     Dates: start: 20140925
  10. FOLINIC ACID [Concomitant]
     Active Substance: LEUCOVORIN
     Route: 065
     Dates: start: 20140827
  11. AVASTIN [Suspect]
     Active Substance: BEVACIZUMAB
     Indication: COLON CANCER METASTATIC
     Dosage: THIRD LINE THERAPY
     Route: 041
     Dates: start: 20140827
  12. OXALIPLATIN. [Suspect]
     Active Substance: OXALIPLATIN
     Indication: COLON CANCER METASTATIC
     Dosage: THIRD LINE THERAPY
     Route: 041
     Dates: start: 20140827

REACTIONS (7)
  - Dizziness postural [Recovered/Resolved]
  - Balance disorder [Recovered/Resolved]
  - Orthostatic hypotension [Recovered/Resolved]
  - Vertigo [Recovered/Resolved]
  - Ototoxicity [Recovered/Resolved]
  - Deafness [Recovered/Resolved]
  - Tinnitus [Recovered/Resolved]

NARRATIVE: CASE EVENT DATE: 20141010
